FAERS Safety Report 9012487 (Version 2)
Quarter: 2013Q1

REPORT INFORMATION
  Report Type: Spontaneous
  Country: US (occurrence: US)
  Receive Date: 20130114
  Receipt Date: 20130222
  Transmission Date: 20140127
  Serious: Yes (Other)
  Sender: FDA-Public Use
  Company Number: CHPA2013US000690

PATIENT
  Age: 79 Year
  Sex: Female

DRUGS (4)
  1. EXCEDRIN EXTRA STRENGTH [Suspect]
     Indication: HEADACHE
     Dosage: 2 DF, EACH MORNING
     Route: 048
     Dates: start: 1960, end: 201201
  2. DEMEROL [Concomitant]
     Indication: PAIN
     Dosage: UNK, UNK
     Dates: start: 1964
  3. COMPAZINE [Concomitant]
     Indication: NAUSEA
     Dosage: UNK, UNK
     Dates: start: 1964
  4. COMPAZINE [Concomitant]
     Indication: HEADACHE

REACTIONS (2)
  - Hiatus hernia [Not Recovered/Not Resolved]
  - Incorrect drug administration duration [Unknown]
